FAERS Safety Report 23846406 (Version 1)
Quarter: 2024Q2

REPORT INFORMATION
  Report Type: Spontaneous
  Country: US (occurrence: US)
  Receive Date: 20240513
  Receipt Date: 20240513
  Transmission Date: 20240716
  Serious: Yes (Other)
  Sender: FDA-Public Use
  Company Number: US-STRIDES ARCOLAB LIMITED-2023SP011690

PATIENT
  Age: 50 Year
  Sex: Female

DRUGS (23)
  1. LORAZEPAM [Suspect]
     Active Substance: LORAZEPAM
     Indication: Neuromyotonia
     Dosage: UNK; SYMPTOMATIC TREATMENT
     Route: 065
  2. LORAZEPAM [Suspect]
     Active Substance: LORAZEPAM
     Indication: Musculoskeletal stiffness
  3. LORAZEPAM [Suspect]
     Active Substance: LORAZEPAM
     Indication: Symptomatic treatment
  4. DIAZEPAM [Suspect]
     Active Substance: DIAZEPAM
     Indication: Neuromyotonia
     Dosage: UNK; SYMPTOMATIC TREATMENT
     Route: 065
  5. DIAZEPAM [Suspect]
     Active Substance: DIAZEPAM
     Indication: Musculoskeletal stiffness
  6. DIAZEPAM [Suspect]
     Active Substance: DIAZEPAM
     Indication: Symptomatic treatment
  7. BACLOFEN [Suspect]
     Active Substance: BACLOFEN
     Indication: Neuromyotonia
     Dosage: UNK; SYMPTOMATIC TREATMENT
     Route: 065
  8. BACLOFEN [Suspect]
     Active Substance: BACLOFEN
     Indication: Musculoskeletal stiffness
  9. BACLOFEN [Suspect]
     Active Substance: BACLOFEN
     Indication: Symptomatic treatment
  10. LEVETIRACETAM [Suspect]
     Active Substance: LEVETIRACETAM
     Indication: Neuromyotonia
     Dosage: UNK
     Route: 065
  11. LEVETIRACETAM [Suspect]
     Active Substance: LEVETIRACETAM
     Indication: Musculoskeletal stiffness
  12. TRIHEXYPHENIDYL [Suspect]
     Active Substance: TRIHEXYPHENIDYL
     Indication: Neuromyotonia
     Dosage: UNK; SYMPTOMATIC TREATMENT
     Route: 065
  13. TRIHEXYPHENIDYL [Suspect]
     Active Substance: TRIHEXYPHENIDYL
     Indication: Musculoskeletal stiffness
  14. TRIHEXYPHENIDYL [Suspect]
     Active Substance: TRIHEXYPHENIDYL
     Indication: Symptomatic treatment
  15. MEXILETINE [Suspect]
     Active Substance: MEXILETINE
     Indication: Neuromyotonia
     Dosage: UNK; SYMPTOMATIC TREATMENT
     Route: 065
  16. MEXILETINE [Suspect]
     Active Substance: MEXILETINE
     Indication: Musculoskeletal stiffness
  17. MEXILETINE [Suspect]
     Active Substance: MEXILETINE
     Indication: Symptomatic treatment
  18. CARBAMAZEPINE [Suspect]
     Active Substance: CARBAMAZEPINE
     Indication: Neuromyotonia
     Dosage: UNK
     Route: 065
  19. CARBAMAZEPINE [Suspect]
     Active Substance: CARBAMAZEPINE
     Indication: Musculoskeletal stiffness
  20. CYCLOBENZAPRINE [Suspect]
     Active Substance: CYCLOBENZAPRINE
     Indication: Neuromyotonia
     Dosage: UNK
     Route: 065
  21. CYCLOBENZAPRINE [Suspect]
     Active Substance: CYCLOBENZAPRINE
     Indication: Musculoskeletal stiffness
  22. ONABOTULINUMTOXINA [Suspect]
     Active Substance: ONABOTULINUMTOXINA
     Indication: Neuromyotonia
     Dosage: UNK
     Route: 065
  23. ONABOTULINUMTOXINA [Suspect]
     Active Substance: ONABOTULINUMTOXINA
     Indication: Musculoskeletal stiffness

REACTIONS (4)
  - Disease progression [Unknown]
  - Drug ineffective [Unknown]
  - Therapy partial responder [Unknown]
  - Off label use [Unknown]
